FAERS Safety Report 6344742-X (Version None)
Quarter: 2009Q3

REPORT INFORMATION
  Report Type: 
  Country: None (occurrence: None)
  Receive Date: 20090904
  Receipt Date: 20090828
  Transmission Date: 20100115
  Serious: Yes (Other)
  Sender: FDA-Public Use
  Company Number: GXBR2009US01748

PATIENT
  Age: 64 Year
  Sex: Male
  Weight: 122.4 kg

DRUGS (1)
  1. OMNITROPE [Suspect]
     Indication: INTERVERTEBRAL DISC PROTRUSION
     Dosage: 4 MG, ONCE/SINGLE, OTHER
     Route: 050
     Dates: start: 20090721

REACTIONS (6)
  - APPLICATION SITE BURN [None]
  - APPLICATION SITE DISCOMFORT [None]
  - BURNS SECOND DEGREE [None]
  - BURNS THIRD DEGREE [None]
  - CHEMICAL BURN OF SKIN [None]
  - PAIN [None]
